FAERS Safety Report 17654868 (Version 1)
Quarter: 2020Q2

REPORT INFORMATION
  Report Type: Spontaneous
  Country: DK (occurrence: DK)
  Receive Date: 20200410
  Receipt Date: 20200410
  Transmission Date: 20200713
  Serious: Yes (Other)
  Sender: FDA-Public Use
  Company Number: DK-PFIZER INC-2020145240

PATIENT
  Age: 37 Year
  Sex: Female

DRUGS (3)
  1. SERTRALINE HCL [Suspect]
     Active Substance: SERTRALINE HYDROCHLORIDE
     Indication: ANXIETY
     Dosage: 50 MG, 1X/DAY, HAS RECEIVED TREATMENT WITH SERTRALINE ON/OFF
     Route: 048
     Dates: start: 201410, end: 201905
  2. OLANZAPINE. [Suspect]
     Active Substance: OLANZAPINE
     Dosage: VARIABLE
     Route: 048
     Dates: start: 2014, end: 201810
  3. OLANZAPINE. [Suspect]
     Active Substance: OLANZAPINE
     Indication: ANXIETY
     Dosage: VARIABLE
     Route: 048
     Dates: start: 2014, end: 201810

REACTIONS (11)
  - Somnolence [Unknown]
  - Heart rate increased [Unknown]
  - Palpitations [Unknown]
  - Tachyphrenia [Unknown]
  - Muscle spasms [Unknown]
  - Restlessness [Unknown]
  - Dyspnoea [Unknown]
  - Tremor [Unknown]
  - Gait disturbance [Unknown]
  - Hyperhidrosis [Unknown]
  - Weight increased [Unknown]

NARRATIVE: CASE EVENT DATE: 2014
